FAERS Safety Report 13033148 (Version 4)
Quarter: 2017Q1

REPORT INFORMATION
  Report Type: Report from Study
  Country: CN (occurrence: CN)
  Receive Date: 20161215
  Receipt Date: 20170228
  Transmission Date: 20170428
  Serious: Yes (Hospitalization, Other)
  Sender: FDA-Public Use
  Company Number: CN-ROCHE-1691649

PATIENT
  Sex: Male
  Weight: 67 kg

DRUGS (4)
  1. XELODA [Suspect]
     Active Substance: CAPECITABINE
     Indication: COLON CANCER
     Route: 065
  2. OXALIPLATIN. [Suspect]
     Active Substance: OXALIPLATIN
     Indication: COLON CANCER
     Route: 065
  3. AVASTIN [Suspect]
     Active Substance: BEVACIZUMAB
     Indication: COLON CANCER
     Route: 041
     Dates: start: 20150512
  4. AVASTIN [Suspect]
     Active Substance: BEVACIZUMAB
     Route: 041

REACTIONS (7)
  - Blood bilirubin increased [Recovered/Resolved]
  - Weight decreased [Unknown]
  - Fatigue [Unknown]
  - Intestinal obstruction [Unknown]
  - Dyschezia [Unknown]
  - Decreased appetite [Unknown]
  - Blood bilirubin increased [Unknown]
